FAERS Safety Report 12552451 (Version 1)
Quarter: 2016Q3

REPORT INFORMATION
  Report Type: Spontaneous
  Country: US (occurrence: US)
  Receive Date: 20160713
  Receipt Date: 20160713
  Transmission Date: 20161109
  Serious: Yes (Other)
  Sender: FDA-Public Use
  Company Number: US-ABBVIE-16P-163-1672410-00

PATIENT
  Sex: Female

DRUGS (1)
  1. LUPRON DEPOT [Suspect]
     Active Substance: LEUPROLIDE ACETATE
     Indication: ENDOMETRIOSIS
     Dosage: TWO SHOTS
     Route: 050

REACTIONS (7)
  - Hysterectomy [Unknown]
  - Amnesia [Unknown]
  - Mental impairment [Unknown]
  - Emotional disorder [Unknown]
  - Activities of daily living impaired [Unknown]
  - Anxiety [Unknown]
  - Panic attack [Unknown]
